FAERS Safety Report 12557902 (Version 2)
Quarter: 2016Q3

REPORT INFORMATION
  Report Type: Report from Study
  Country: BR (occurrence: BR)
  Receive Date: 20160714
  Receipt Date: 20160718
  Transmission Date: 20161109
  Serious: Yes (Other)
  Sender: FDA-Public Use
  Company Number: PHHY2016BR067887

PATIENT
  Age: 29 Year
  Sex: Female
  Weight: 57 kg

DRUGS (1)
  1. GILENYA [Suspect]
     Active Substance: FINGOLIMOD HYDROCHLORIDE
     Indication: MULTIPLE SCLEROSIS
     Dosage: 0.5 MG, QD
     Route: 048
     Dates: start: 20160304

REACTIONS (10)
  - Epistaxis [Recovered/Resolved]
  - Condition aggravated [Not Recovered/Not Resolved]
  - Mouth haemorrhage [Recovered/Resolved]
  - Rhinorrhoea [Unknown]
  - Epistaxis [Recovered/Resolved]
  - Pharyngitis [Not Recovered/Not Resolved]
  - Vomiting [Recovering/Resolving]
  - Influenza [Recovering/Resolving]
  - Malaise [Unknown]
  - Sneezing [Recovered/Resolved]

NARRATIVE: CASE EVENT DATE: 20160504
